FAERS Safety Report 5673811-2 (Version None)
Quarter: 2008Q2

REPORT INFORMATION
  Report Type: 
  Country: None (occurrence: None)
  Receive Date: 20080226
  Receipt Date: 20070618
  Transmission Date: 20081010
  Serious: Yes (Hospitalization)
  Sender: FDA-Public Use
  Company Number: 503358

PATIENT
  Age: 16 Year
  Sex: Male
  Weight: 97.5 kg

DRUGS (6)
  1. ACCUTANE [Suspect]
     Indication: ACNE
     Dosage: 40 MG  2 PER DAY  ORAL
     Route: 048
     Dates: start: 20021114, end: 20030414
  2. MINOCIN [Concomitant]
  3. DYNACIN (MINOCYCLINE) [Concomitant]
  4. TAZORAC [Concomitant]
  5. KLARON (SULFACETAMIDE SODIUM) [Concomitant]
  6. TRIAZ (BENZOYL PEROXIDE) [Concomitant]

REACTIONS (12)
  - ACNE [None]
  - ANAEMIA [None]
  - BLOOD TRIGLYCERIDES INCREASED [None]
  - COLITIS [None]
  - COLITIS ULCERATIVE [None]
  - CROHN'S DISEASE [None]
  - DRY SKIN [None]
  - EMOTIONAL DISTRESS [None]
  - HIGH DENSITY LIPOPROTEIN DECREASED [None]
  - ILEITIS [None]
  - INFLAMMATORY BOWEL DISEASE [None]
  - LIP DRY [None]
